FAERS Safety Report 23950620 (Version 2)
Quarter: 2024Q3

REPORT INFORMATION
  Report Type: Report from Study
  Country: CO (occurrence: CO)
  Receive Date: 20240607
  Receipt Date: 20240705
  Transmission Date: 20241017
  Serious: Yes (Hospitalization)
  Sender: RECORDATI
  Company Number: CO-RECORDATI-2023007547

PATIENT

DRUGS (24)
  1. SIGNIFOR [Suspect]
     Active Substance: PASIREOTIDE DIASPARTATE
     Indication: Cushing^s syndrome
     Dosage: 0.6 MILLIGRAM, Q12H
     Route: 058
     Dates: start: 20230622
  2. SIGNIFOR [Suspect]
     Active Substance: PASIREOTIDE DIASPARTATE
     Dosage: 0.6 MILLIGRAM, Q12H
     Route: 058
     Dates: start: 20240614
  3. VALSARTAN [Concomitant]
     Active Substance: VALSARTAN
     Indication: Hypertension
     Dosage: 160 MILLIGRAM DAILY
     Route: 048
  4. PANTOPRAZOLE [Concomitant]
     Active Substance: PANTOPRAZOLE
     Indication: Reflux gastritis
     Dosage: 80 MILLIGRAM DAILY
     Route: 048
  5. ASPIRIN [Concomitant]
     Active Substance: ASPIRIN
     Indication: Antiplatelet therapy
     Dosage: 100 MILLIGRAM DAILY
     Route: 048
  6. ATORVASTATIN [Concomitant]
     Active Substance: ATORVASTATIN
     Indication: Hypercholesterolaemia
     Dosage: 49 MILLIGRAM DAILY
     Route: 048
  7. ATORVASTATIN [Concomitant]
     Active Substance: ATORVASTATIN
     Indication: Dyslipidaemia
     Dosage: 40 MILLIGRAM DAILY
     Route: 048
  8. INSULIN GLARGINE [Concomitant]
     Active Substance: INSULIN GLARGINE
     Indication: Diabetes mellitus
     Dosage: 35 UNIT PER DAY
     Route: 058
  9. KETOCONAZOLE [Concomitant]
     Active Substance: KETOCONAZOLE
     Indication: Infection
     Dosage: 400 MILLIGRAM PER DAY
     Route: 048
  10. CALCIUM CARBONATE\VITAMIN D [Concomitant]
     Active Substance: CALCIUM CARBONATE\VITAMIN D
     Indication: Osteoporosis
     Dosage: 600 MILLIGRAM PER DAY
     Route: 048
  11. ASCORBIC ACID [Concomitant]
     Active Substance: ASCORBIC ACID
     Indication: Vitamin C deficiency
     Dosage: 500 MILLIGRAM PER DAY
     Route: 048
  12. EMPAGLIFLOZIN [Concomitant]
     Active Substance: EMPAGLIFLOZIN
     Indication: Diabetes mellitus
     Dosage: 12.5 MILLIGRAM PER DAY
     Route: 048
  13. BISOPROLOL [Concomitant]
     Active Substance: BISOPROLOL\BISOPROLOL FUMARATE
     Indication: Hypertension
     Dosage: 5 MILLIGRAM PER DAY
     Route: 048
  14. PREGABALIN [Concomitant]
     Active Substance: PREGABALIN
     Indication: Neuralgia
     Dosage: 300 MILLIGRAM DAILY
     Route: 048
  15. ZALDIAR [Concomitant]
     Active Substance: ACETAMINOPHEN\TRAMADOL HYDROCHLORIDE
     Indication: Pain
     Dosage: 37.5 MILLIGRAM DAILY
     Route: 048
  16. CABERGOLINE [Concomitant]
     Active Substance: CABERGOLINE
     Indication: Hyperprolactinaemia
     Dosage: 2 MILLIGRAM, QW
     Route: 048
  17. TRAMADOL [Concomitant]
     Active Substance: TRAMADOL\TRAMADOL HYDROCHLORIDE
     Indication: Analgesic therapy
     Dosage: UNK
     Dates: start: 20240523
  18. ACETAMINOPHEN [Concomitant]
     Active Substance: ACETAMINOPHEN
     Indication: Analgesic therapy
     Dosage: UNK
     Dates: start: 20240523
  19. OMEPRAZOLE [Concomitant]
     Active Substance: OMEPRAZOLE
     Indication: Antacid therapy
     Dosage: UNK
  20. LANTUS [Concomitant]
     Active Substance: INSULIN GLARGINE
     Indication: Type 2 diabetes mellitus
     Dosage: UNK
  21. ENOXAPARIN [Concomitant]
     Active Substance: ENOXAPARIN
     Indication: Anticoagulant therapy
     Dosage: UNK
     Dates: start: 20240523
  22. APIDRA [Concomitant]
     Active Substance: INSULIN GLULISINE
     Indication: Type 2 diabetes mellitus
     Dosage: UNK
  23. AMLODIPINE AND VALSARTAN [Concomitant]
     Active Substance: AMLODIPINE\VALSARTAN
     Indication: Hypertension
     Dosage: 10-160 MG/24H
  24. METFORMIN [Concomitant]
     Active Substance: METFORMIN HYDROCHLORIDE
     Indication: Type 2 diabetes mellitus
     Dosage: 1000 MG/24 H

REACTIONS (2)
  - Pituitary tumour removal [Recovering/Resolving]
  - Blood glucose increased [Unknown]

NARRATIVE: CASE EVENT DATE: 20231027
